FAERS Safety Report 8070122-5 (Version None)
Quarter: 2012Q1

REPORT INFORMATION
  Report Type: 
  Country: None (occurrence: None)
  Receive Date: 20120125
  Receipt Date: 20120120
  Transmission Date: 20120608
  Serious: Yes (Life-Threatening, Hospitalization)
  Sender: FDA-Public Use
  Company Number: JP-SANOFI-AVENTIS-2011SA077436

PATIENT
  Age: 57 Year
  Sex: Male
  Weight: 69.8 kg

DRUGS (11)
  1. ACETAMINOPHEN [Concomitant]
     Indication: PAIN MANAGEMENT
     Route: 048
     Dates: start: 20110630
  2. REBAMIPIDE [Concomitant]
     Route: 048
     Dates: start: 20110627
  3. DOCETAXEL [Suspect]
     Route: 041
     Dates: start: 20111025
  4. DOCETAXEL [Suspect]
     Route: 041
     Dates: start: 20111025
  5. CLONAZEPAM [Concomitant]
     Route: 048
     Dates: start: 20110924
  6. DOCETAXEL [Suspect]
     Indication: CHEMOTHERAPY
     Dosage: STRENGTH: 80MG/4ML
     Route: 041
     Dates: start: 20111101
  7. OXYCONTIN [Concomitant]
     Indication: PAIN MANAGEMENT
     Route: 048
     Dates: start: 20110630
  8. DOCETAXEL [Suspect]
     Dosage: STRENGTH: 80MG/4ML
     Route: 041
     Dates: start: 20111101
  9. DEPAKENE [Concomitant]
     Route: 048
     Dates: start: 20110924
  10. LOXOPROFEN [Concomitant]
     Indication: PAIN MANAGEMENT
     Route: 048
     Dates: start: 20110622
  11. LANSOPRAZOLE [Concomitant]
     Route: 048
     Dates: start: 20110630

REACTIONS (3)
  - ALTERED STATE OF CONSCIOUSNESS [None]
  - LUNG DISORDER [None]
  - DYSPNOEA [None]
